FAERS Safety Report 5385127-2 (Version None)
Quarter: 2007Q3

REPORT INFORMATION
  Report Type: 
  Country: None (occurrence: None)
  Receive Date: 20070712
  Receipt Date: 20070703
  Transmission Date: 20080115
  Serious: Yes (Other)
  Sender: FDA-Public Use
  Company Number: US-BAYER-200712136BCC

PATIENT
  Age: 76 Year
  Sex: Female
  Weight: 54 kg

DRUGS (7)
  1. ASPIRIN [Suspect]
     Indication: ISCHAEMIC HEART DISEASE PROPHYLAXIS
     Dosage: TOTAL DAILY DOSE: 81 MG  UNIT DOSE: 81 MG
     Route: 048
     Dates: end: 20070702
  2. FOSAMAX [Concomitant]
  3. TAMOXIFEN [Concomitant]
  4. ACIPHEX [Concomitant]
  5. CLONAZEPAM [Concomitant]
  6. CARBAMAZEPINE [Concomitant]
  7. CENTRUM SILVER [Concomitant]

REACTIONS (1)
  - HYPOACUSIS [None]
